FAERS Safety Report 16935895 (Version 1)
Quarter: 2019Q4

REPORT INFORMATION
  Report Type: Spontaneous
  Country: US (occurrence: US)
  Receive Date: 20191018
  Receipt Date: 20191018
  Transmission Date: 20200122
  Serious: Yes (Other)
  Sender: FDA-Public Use
  Company Number: US-PFIZER INC-2019451171

PATIENT
  Age: 50 Year
  Sex: Male

DRUGS (2)
  1. VIAGRA [Suspect]
     Active Substance: SILDENAFIL CITRATE
     Dosage: 50 MG, MONTHLY
     Dates: start: 20041230, end: 20041230
  2. VIAGRA [Suspect]
     Active Substance: SILDENAFIL CITRATE
     Indication: ERECTILE DYSFUNCTION
     Dosage: 100 MG, MONTHLY
     Dates: start: 20021230, end: 20031018

REACTIONS (1)
  - Malignant melanoma [Unknown]

NARRATIVE: CASE EVENT DATE: 20111114
